FAERS Safety Report 17238991 (Version 2)
Quarter: 2020Q4

REPORT INFORMATION
  Report Type: Spontaneous
  Country: PL (occurrence: PL)
  Receive Date: 20200106
  Receipt Date: 20201026
  Transmission Date: 20210113
  Serious: Yes (Other)
  Sender: FDA-Public Use
  Company Number: PL-BAUSCH-BL-2019-066833

PATIENT
  Age: 17 Year
  Sex: Female

DRUGS (4)
  1. ACIX [ACICLOVIR SODIUM] [Suspect]
     Active Substance: ACYCLOVIR SODIUM
     Dosage: ADMINISTERED AGAIN
     Route: 042
  2. DEXAVEN [Concomitant]
     Active Substance: DEXAMETHASONE
     Indication: HERPES ZOSTER OTICUS
     Route: 042
  3. ACIX [ACICLOVIR SODIUM] [Suspect]
     Active Substance: ACYCLOVIR SODIUM
     Indication: HERPES ZOSTER OTICUS
     Route: 042
  4. DEXAVEN [Concomitant]
     Active Substance: DEXAMETHASONE
     Dosage: ADMINISTERED AGAIN
     Route: 042

REACTIONS (1)
  - Acute kidney injury [Recovered/Resolved]
